FAERS Safety Report 21407854 (Version 2)
Quarter: 2022Q4

REPORT INFORMATION
  Report Type: Spontaneous
  Country: US (occurrence: US)
  Receive Date: 20221004
  Receipt Date: 20221024
  Transmission Date: 20230112
  Serious: Yes (Hospitalization)
  Sender: FDA-Public Use
  Company Number: US-Calliditas-2022CAL00387

PATIENT
  Age: 53 Year
  Sex: Male

DRUGS (9)
  1. TARPEYO [Suspect]
     Active Substance: BUDESONIDE
     Indication: Haematuria
     Dosage: 16 MG (4 MG CAPSULES) DAILY
     Route: 048
     Dates: start: 20220608
  2. ASPIRIN [Concomitant]
     Active Substance: ASPIRIN
  3. CYCLOPHOSPHAMIDE [Concomitant]
     Active Substance: CYCLOPHOSPHAMIDE
  4. METOPROLOL [Concomitant]
     Active Substance: METOPROLOL
  5. PREDNISONE [Concomitant]
     Active Substance: PREDNISONE
     Dates: end: 20220911
  6. GABAPENTIN [Concomitant]
     Active Substance: GABAPENTIN
  7. COLCHICINE [Concomitant]
     Active Substance: COLCHICINE
  8. BUMETANIDE [Concomitant]
     Active Substance: BUMETANIDE
  9. ALLOPURINOL [Concomitant]
     Active Substance: ALLOPURINOL

REACTIONS (4)
  - Gastroenteritis salmonella [Recovered/Resolved]
  - Abdominal distension [Recovered/Resolved]
  - Flatulence [Recovered/Resolved]
  - Product administration error [Unknown]

NARRATIVE: CASE EVENT DATE: 20220608
